FAERS Safety Report 14363441 (Version 1)
Quarter: 2018Q1

REPORT INFORMATION
  Report Type: Spontaneous
  Country: ES (occurrence: ES)
  Receive Date: 20180108
  Receipt Date: 20180108
  Transmission Date: 20180509
  Serious: Yes (Other)
  Sender: FDA-Public Use
  Company Number: ES-GLAXOSMITHKLINE-ES2018GSK001019

PATIENT
  Sex: Male

DRUGS (2)
  1. ZITROMAX (AZITHROMYCIN) [Suspect]
     Active Substance: AZITHROMYCIN
     Indication: ASTHMA
     Dosage: 1.5 ML, UNK
  2. FLIXOTIDE [Suspect]
     Active Substance: FLUTICASONE PROPIONATE
     Indication: ASTHMA
     Dosage: UNK

REACTIONS (3)
  - Tonsillitis [Recovered/Resolved]
  - Deafness [Unknown]
  - Apnoea [Unknown]
